FAERS Safety Report 11789869 (Version 1)
Quarter: 2015Q4

REPORT INFORMATION
  Report Type: Spontaneous
  Country: US (occurrence: None)
  Receive Date: 20151130
  Receipt Date: 20151130
  Transmission Date: 20160305
  Serious: Yes (Other)
  Sender: FDA-Public Use
  Company Number: None

PATIENT
  Age: 63 Year
  Sex: Female

DRUGS (1)
  1. COSENTYX [Suspect]
     Active Substance: SECUKINUMAB
     Indication: PSORIASIS
     Dosage: 150 MG/ML 300 MG Q 4 WEEKS
     Route: 058
     Dates: start: 20150602

REACTIONS (2)
  - Angiopathy [None]
  - Eye disorder [None]

NARRATIVE: CASE EVENT DATE: 20151113
